FAERS Safety Report 16002094 (Version 4)
Quarter: 2020Q1

REPORT INFORMATION
  Report Type: Report from Study
  Country: US (occurrence: US)
  Receive Date: 20190225
  Receipt Date: 20200306
  Transmission Date: 20200409
  Serious: Yes (Death, Life-Threatening, Hospitalization, Other)
  Sender: FDA-Public Use
  Company Number: US-GILEAD-2018-0345266

PATIENT
  Age: 63 Year
  Sex: Female
  Weight: 66.3 kg

DRUGS (233)
  1. ZOVIRAX [Concomitant]
     Active Substance: ACYCLOVIR
     Dosage: 400 MG, TID
     Route: 048
     Dates: start: 20180508, end: 20180516
  2. CETAPHIL                           /02833701/ [Concomitant]
     Dosage: UNK UNK, SINGLE
     Route: 061
     Dates: start: 20180423, end: 20180423
  3. HEPARIN [Concomitant]
     Active Substance: HEPARIN SODIUM
     Dosage: 100 IU/ML, SINGLE AT BEDTIME
     Route: 042
     Dates: start: 20180410, end: 20180410
  4. ATROVENT [Concomitant]
     Active Substance: IPRATROPIUM BROMIDE
     Indication: PRODUCT USED FOR UNKNOWN INDICATION
     Dosage: 0.5 MG, 4 TIMES
     Dates: start: 20180420, end: 20180420
  5. ATROVENT [Concomitant]
     Active Substance: IPRATROPIUM BROMIDE
     Dosage: 0.5 MG, TID
     Dates: start: 20180423, end: 20180423
  6. LEVAQUIN [Concomitant]
     Active Substance: LEVOFLOXACIN
     Indication: FEBRILE NEUTROPENIA
     Dosage: 750 MG, QD EVERY 24 HOURS
     Route: 048
     Dates: start: 20180416, end: 20180419
  7. MAGNESIUM SULFATE. [Concomitant]
     Active Substance: MAGNESIUM SULFATE
     Dosage: 8-32 MEQ, SINGLE
     Route: 042
     Dates: start: 20180410, end: 20180410
  8. MAGNESIUM SULFATE. [Concomitant]
     Active Substance: MAGNESIUM SULFATE
     Dosage: 8-32 MEQ, SINGLE
     Route: 042
     Dates: start: 20180420, end: 20180420
  9. MYCOSTATIN [Concomitant]
     Active Substance: NYSTATIN
     Dosage: 5 ML, QID
     Route: 048
     Dates: start: 20180416, end: 20180430
  10. ZOFRAN [Concomitant]
     Active Substance: ONDANSETRON HYDROCHLORIDE
     Dosage: 8 MG, BID
     Route: 048
     Dates: start: 20180416, end: 20180417
  11. ZOFRAN [Concomitant]
     Active Substance: ONDANSETRON HYDROCHLORIDE
     Dosage: 8 MG, Q6H PRN
     Route: 042
     Dates: start: 20180504
  12. POTASSIUM CHLORIDE. [Concomitant]
     Active Substance: POTASSIUM CHLORIDE
     Dosage: 10 MEQ, SINGLE
     Route: 048
     Dates: start: 20180417, end: 20180417
  13. COMPAZINE                          /00013302/ [Concomitant]
     Active Substance: PROCHLORPERAZINE EDISYLATE
     Indication: NAUSEA
     Dosage: 5 MG, SINGLE
     Route: 042
     Dates: start: 20180417, end: 20180417
  14. COMPAZINE                          /00013302/ [Concomitant]
     Active Substance: PROCHLORPERAZINE EDISYLATE
     Indication: VOMITING
     Dosage: 5 MG, SINGLE
     Route: 048
     Dates: start: 20180417, end: 20180417
  15. SENOKOT [Concomitant]
     Active Substance: SENNOSIDES
     Dosage: 1 TABLET, QD
     Route: 048
     Dates: start: 20180515, end: 20180516
  16. MAXIPIME [Concomitant]
     Active Substance: CEFEPIME HYDROCHLORIDE
     Dosage: 2 G, Q8H
     Route: 042
     Dates: start: 20180514, end: 20180517
  17. XYLOCAINE [Concomitant]
     Active Substance: LIDOCAINE HYDROCHLORIDE
     Indication: PRODUCT USED FOR UNKNOWN INDICATION
     Dosage: 2 %, SINGLE
     Route: 042
     Dates: start: 20180414, end: 20180414
  18. ATIVAN [Concomitant]
     Active Substance: LORAZEPAM
     Indication: NAUSEA
     Dosage: 0.5 MG, SINGLE
     Route: 048
     Dates: start: 20180410, end: 20180410
  19. CALCIFEROL                         /00107901/ [Concomitant]
     Active Substance: ERGOCALCIFEROL
     Indication: PRODUCT USED FOR UNKNOWN INDICATION
     Dosage: 50000 IU, EVERY 7 DAYS
     Dates: start: 20180514, end: 20180516
  20. MELATONIN [Concomitant]
     Active Substance: MELATONIN
     Indication: PRODUCT USED FOR UNKNOWN INDICATION
     Dosage: 3 MG, QD
     Route: 048
     Dates: start: 20180514, end: 20180516
  21. CATHFLO ACTIVASE [Concomitant]
     Active Substance: ALTEPLASE
     Indication: PRODUCT USED FOR UNKNOWN INDICATION
     Dosage: 2 MG, PRN
     Route: 042
     Dates: start: 20180409, end: 20180418
  22. FENTANYL. [Concomitant]
     Active Substance: FENTANYL
     Indication: SEDATION
     Dosage: 25 MCG, PRN
     Route: 042
     Dates: start: 20180515, end: 20180515
  23. TYLENOL [Concomitant]
     Active Substance: ACETAMINOPHEN
     Indication: PYREXIA
     Dosage: 650 MG, QD
     Route: 048
     Dates: start: 20180412, end: 20180413
  24. ZOVIRAX [Concomitant]
     Active Substance: ACYCLOVIR
     Dosage: 230 MG, QID
     Route: 042
     Dates: start: 20180423, end: 20180423
  25. CETAPHIL                           /02833701/ [Concomitant]
     Dosage: UNK UNK, SINGLE
     Route: 061
     Dates: start: 20180412, end: 20180412
  26. CETAPHIL                           /02833701/ [Concomitant]
     Dosage: UNK UNK, SINGLE
     Route: 061
     Dates: start: 20180416, end: 20180416
  27. CETAPHIL                           /02833701/ [Concomitant]
     Dosage: UNK UNK, SINGLE
     Route: 061
     Dates: start: 20180417, end: 20180417
  28. CETAPHIL                           /02833701/ [Concomitant]
     Dosage: UNK, SINGLE
     Dates: start: 20180421, end: 20180421
  29. KEPPRA [Concomitant]
     Active Substance: LEVETIRACETAM
     Dosage: 500 MG, SINGLE
     Route: 048
     Dates: start: 20180420, end: 20180420
  30. MAGNESIUM SULFATE. [Concomitant]
     Active Substance: MAGNESIUM SULFATE
     Dosage: 8-32 MEQ, SINGLE
     Route: 042
     Dates: start: 20180417, end: 20180417
  31. MAGNESIUM SULFATE. [Concomitant]
     Active Substance: MAGNESIUM SULFATE
     Dosage: 8-32 MEQ, SINGLE
     Route: 042
     Dates: start: 20180418, end: 20180418
  32. MAGNESIUM SULFATE. [Concomitant]
     Active Substance: MAGNESIUM SULFATE
     Dosage: 8-32 MEQ, SINGLE
     Route: 042
     Dates: start: 20180419, end: 20180419
  33. MAGNESIUM SULFATE. [Concomitant]
     Active Substance: MAGNESIUM SULFATE
     Dosage: 8-32 MEQ, SINGLE
     Route: 042
     Dates: start: 20180422, end: 20180422
  34. MYCOSTATIN [Concomitant]
     Active Substance: NYSTATIN
     Indication: ORAL INFECTION
     Dosage: 5 ML, QID
     Route: 048
     Dates: start: 20180416, end: 20180416
  35. ZOFRAN [Concomitant]
     Active Substance: ONDANSETRON HYDROCHLORIDE
     Dosage: 8 MG, Q6H
     Route: 048
     Dates: start: 20180422, end: 20180517
  36. POTASSIUM CHLORIDE. [Concomitant]
     Active Substance: POTASSIUM CHLORIDE
     Indication: PRODUCT USED FOR UNKNOWN INDICATION
     Dosage: 20 MEQ, SINGLE
     Route: 042
     Dates: start: 20180410, end: 20180410
  37. POTASSIUM CHLORIDE. [Concomitant]
     Active Substance: POTASSIUM CHLORIDE
     Dosage: 20 MEQ, SINGLE
     Route: 042
     Dates: start: 20180418, end: 20180418
  38. POTASSIUM CHLORIDE. [Concomitant]
     Active Substance: POTASSIUM CHLORIDE
     Dosage: 20 MEQ, BID
     Route: 042
     Dates: start: 20180419, end: 20180419
  39. POTASSIUM CHLORIDE. [Concomitant]
     Active Substance: POTASSIUM CHLORIDE
     Dosage: 10 MEQ, SINGLE
     Route: 042
     Dates: start: 20180420, end: 20180420
  40. POTASSIUM CHLORIDE. [Concomitant]
     Active Substance: POTASSIUM CHLORIDE
     Dosage: 20 MEQ, SINGLE
     Route: 042
     Dates: start: 20180420, end: 20180420
  41. POTASSIUM CHLORIDE. [Concomitant]
     Active Substance: POTASSIUM CHLORIDE
     Dosage: 20 MEQ, BID
     Route: 042
     Dates: start: 20180422, end: 20180422
  42. K-DUR [Concomitant]
     Active Substance: POTASSIUM CHLORIDE
     Dosage: 20 MEQ, SINGLE
     Route: 048
     Dates: start: 20180411, end: 20180411
  43. COMPAZINE                          /00013302/ [Concomitant]
     Active Substance: PROCHLORPERAZINE EDISYLATE
     Dosage: 5 MG, SINGLE
     Route: 048
     Dates: start: 20180420, end: 20180420
  44. COMPAZINE                          /00013302/ [Concomitant]
     Active Substance: PROCHLORPERAZINE EDISYLATE
     Dosage: 5 MG, Q6H PRN
     Route: 042
     Dates: start: 20180410
  45. SENOKOT [Concomitant]
     Active Substance: SENNOSIDES
     Indication: PRODUCT USED FOR UNKNOWN INDICATION
     Dosage: 2 DF, HS
     Route: 048
     Dates: start: 20180410, end: 20180410
  46. OFIRMEV [Concomitant]
     Active Substance: ACETAMINOPHEN
     Indication: PRODUCT USED FOR UNKNOWN INDICATION
     Dosage: 1 G, 400 ML/HR SINGLE
     Route: 042
     Dates: start: 20180412, end: 20180412
  47. MAXIPIME [Concomitant]
     Active Substance: CEFEPIME HYDROCHLORIDE
     Dosage: 2 G, SINGLE
     Route: 042
     Dates: start: 20180514, end: 20180514
  48. LASIX [Concomitant]
     Active Substance: FUROSEMIDE
     Dosage: 40 MG, SINGLE
     Route: 048
     Dates: start: 20180411, end: 20180411
  49. LASIX [Concomitant]
     Active Substance: FUROSEMIDE
     Dosage: 40 MG, SINGLE
     Route: 042
     Dates: start: 20180420, end: 20180420
  50. NORMAL SALINE [Concomitant]
     Active Substance: SODIUM CHLORIDE
     Dosage: 20 ML/HR CONTINUOUS
     Route: 042
     Dates: start: 20180410, end: 20180411
  51. NORMAL SALINE [Concomitant]
     Active Substance: SODIUM CHLORIDE
     Dosage: 125 ML/HR CONTINUOUS
     Route: 042
     Dates: start: 20180418, end: 20180420
  52. NORMAL SALINE [Concomitant]
     Active Substance: SODIUM CHLORIDE
     Dosage: 1000 ML, SINGLE
     Route: 042
     Dates: start: 20180410, end: 20180410
  53. NORVASC [Concomitant]
     Active Substance: AMLODIPINE BESYLATE
     Indication: PRODUCT USED FOR UNKNOWN INDICATION
     Dosage: 5 MG, QD
     Route: 048
     Dates: start: 20180416, end: 20180422
  54. VITAMIN D3 [Concomitant]
     Active Substance: CHOLECALCIFEROL
     Indication: PRODUCT USED FOR UNKNOWN INDICATION
     Dosage: 1000 IU, QD
     Route: 048
     Dates: start: 20180410, end: 20180422
  55. ATIVAN [Concomitant]
     Active Substance: LORAZEPAM
     Indication: VOMITING
     Dosage: 0.26 MG, SINGLE
     Route: 042
     Dates: start: 20180412, end: 20180412
  56. CALCIUM GLUCONATE. [Concomitant]
     Active Substance: CALCIUM GLUCONATE
     Indication: HYPOCALCAEMIA
     Dosage: 4.6 MEQ, PRN
     Route: 042
     Dates: start: 20180515
  57. NOXAFIL [Concomitant]
     Active Substance: POSACONAZOLE
     Indication: PRODUCT USED FOR UNKNOWN INDICATION
     Dosage: 300 MG, BID
     Route: 042
     Dates: start: 20180515, end: 20180516
  58. CARAFATE [Concomitant]
     Active Substance: SUCRALFATE
     Indication: OESOPHAGEAL PAIN
     Dosage: 1 G, Q6H
     Dates: start: 20180418, end: 20180418
  59. CYCLOPHOSPHAMIDE. [Suspect]
     Active Substance: CYCLOPHOSPHAMIDE
     Indication: BONE MARROW CONDITIONING REGIMEN
     Dosage: 856 MG (500 MG/M^2), QD
     Route: 042
     Dates: start: 20180408, end: 20180410
  60. COLACE [Concomitant]
     Active Substance: DOCUSATE SODIUM
     Dosage: 200 MG, BID
     Route: 048
     Dates: start: 20180412, end: 20180412
  61. PEPCID [Concomitant]
     Active Substance: FAMOTIDINE
     Indication: PRODUCT USED FOR UNKNOWN INDICATION
     Dosage: 20 MG, SINGLE
     Route: 048
     Dates: start: 20180409, end: 20180409
  62. PEPCID [Concomitant]
     Active Substance: FAMOTIDINE
     Dosage: 20 MG, BID
     Route: 042
     Dates: start: 20180421, end: 20180423
  63. NEUPOGEN [Concomitant]
     Active Substance: FILGRASTIM
     Dosage: 300 MCG, SINGLE
     Route: 058
     Dates: start: 20180511, end: 20180511
  64. ATROVENT [Concomitant]
     Active Substance: IPRATROPIUM BROMIDE
     Dosage: 0.5 MG, TID
     Dates: start: 20180421, end: 20180421
  65. ATROVENT [Concomitant]
     Active Substance: IPRATROPIUM BROMIDE
     Dosage: 0.5 MG, SINGLE
     Dates: start: 20180422, end: 20180422
  66. TRANDATE [Concomitant]
     Active Substance: LABETALOL HYDROCHLORIDE
     Dosage: 5 MG, Q6H
     Route: 042
     Dates: start: 20180423, end: 20180516
  67. KEPPRA [Concomitant]
     Active Substance: LEVETIRACETAM
     Dosage: 500 MG, SINGLE
     Route: 042
     Dates: start: 20180420, end: 20180420
  68. LEVAQUIN [Concomitant]
     Active Substance: LEVOFLOXACIN
     Indication: PNEUMONIA
     Dosage: 750 MG, EVERY 48 HOURS
     Dates: start: 20180413, end: 20180415
  69. LEVAQUIN [Concomitant]
     Active Substance: LEVOFLOXACIN
     Dosage: 750 MG, QD
     Route: 042
     Dates: start: 20180515, end: 20180517
  70. MAGNESIUM SULFATE. [Concomitant]
     Active Substance: MAGNESIUM SULFATE
     Dosage: 8-32 MEQ, SINGLE
     Route: 042
     Dates: start: 20180411, end: 20180411
  71. MERREM [Concomitant]
     Active Substance: MEROPENEM
     Indication: PNEUMONIA
     Dosage: 1 G, SINGLE
     Route: 042
     Dates: start: 20180412, end: 20180412
  72. ROXICODONE [Concomitant]
     Active Substance: OXYCODONE HYDROCHLORIDE
     Indication: PAIN
     Dosage: 5 MG, SINGLE
     Route: 048
     Dates: start: 20180418, end: 20180418
  73. POTASSIUM CHLORIDE. [Concomitant]
     Active Substance: POTASSIUM CHLORIDE
     Dosage: 20 MEQ, SINGLE
     Route: 048
     Dates: start: 20180413, end: 20180413
  74. COMPAZINE                          /00013302/ [Concomitant]
     Active Substance: PROCHLORPERAZINE EDISYLATE
     Dosage: 5 MG, Q6H
     Route: 042
     Dates: start: 20180410, end: 20180517
  75. DESYREL [Concomitant]
     Active Substance: TRAZODONE HYDROCHLORIDE
     Dosage: 25 MG, SINGLE BEDTIME
     Route: 048
     Dates: start: 20180419, end: 20180419
  76. NORMAL SALINE [Concomitant]
     Active Substance: SODIUM CHLORIDE
     Dosage: 75 ML/HR CONTINUOUS
     Route: 042
     Dates: start: 20180412, end: 20180415
  77. NORMAL SALINE [Concomitant]
     Active Substance: SODIUM CHLORIDE
     Dosage: 25 ML/HR CONTINUOUS
     Route: 042
     Dates: start: 20180420, end: 20180421
  78. CIPRO [Concomitant]
     Active Substance: CIPROFLOXACIN HYDROCHLORIDE
     Indication: PROPHYLAXIS
     Dosage: 500 MG, BID
     Route: 048
     Dates: start: 20180418, end: 20180419
  79. HYDRALAZINE [Concomitant]
     Active Substance: HYDRALAZINE HYDROCHLORIDE
     Indication: BLOOD PRESSURE INCREASED
     Dosage: 2.5 MG, SINGLE
     Route: 042
     Dates: start: 20180415, end: 20180415
  80. VANCOCIN [Concomitant]
     Active Substance: VANCOMYCIN HYDROCHLORIDE
     Indication: PRODUCT USED FOR UNKNOWN INDICATION
     Dosage: 1 G, SINGLE
     Route: 042
     Dates: start: 20180420, end: 20180420
  81. VANCOCIN [Concomitant]
     Active Substance: VANCOMYCIN HYDROCHLORIDE
     Dosage: 1 G, SINGLE
     Route: 042
     Dates: start: 20180421, end: 20180421
  82. SODIUM PHOSPHATE [Concomitant]
     Active Substance: SODIUM PHOSPHATE
     Dosage: 15 MMOL, SINGLE
     Route: 042
     Dates: start: 20180422, end: 20180422
  83. FIORICET [Concomitant]
     Active Substance: ACETAMINOPHEN\BUTALBITAL\CAFFEINE
     Indication: HEADACHE
     Dosage: 1 DF, Q6H
     Route: 048
     Dates: start: 20180510, end: 20180516
  84. TRIPLE                             /00038301/ [Concomitant]
     Active Substance: BACITRACIN\NEOMYCIN SULFATE\POLYMYXIN B SULFATE
     Indication: ORAL PAIN
     Dosage: 10 ML
     Route: 048
     Dates: start: 20180409
  85. REGLAN [Concomitant]
     Active Substance: METOCLOPRAMIDE HYDROCHLORIDE
     Dosage: 10 MG, SINGLE
     Route: 042
     Dates: start: 20180516, end: 20180516
  86. CARAFATE [Concomitant]
     Active Substance: SUCRALFATE
     Dosage: 1 G, Q6H
     Dates: start: 20180419, end: 20180515
  87. DUONEB [Concomitant]
     Active Substance: ALBUTEROL SULFATE\IPRATROPIUM BROMIDE
     Indication: PRODUCT USED FOR UNKNOWN INDICATION
     Dosage: 3 ML, Q4H
     Route: 045
     Dates: start: 20180515, end: 20180530
  88. FLUDARABINE [Suspect]
     Active Substance: FLUDARABINE PHOSPHATE
     Indication: BONE MARROW CONDITIONING REGIMEN
     Dosage: 51 MG (30 MG/M^2) , QD
     Route: 042
     Dates: start: 20180408, end: 20180410
  89. ZOVIRAX [Concomitant]
     Active Substance: ACYCLOVIR
     Dosage: 230 MG, 100ML/HR, 1 HOUR
     Route: 042
     Dates: start: 20180420, end: 20180420
  90. COLACE [Concomitant]
     Active Substance: DOCUSATE SODIUM
     Indication: CONSTIPATION
     Dosage: 200 MG, SINGLE
     Route: 048
     Dates: start: 20180410, end: 20180410
  91. PEPCID [Concomitant]
     Active Substance: FAMOTIDINE
     Dosage: 20 MG, SINGLE
     Route: 042
     Dates: start: 20180420, end: 20180420
  92. CETAPHIL                           /02833701/ [Concomitant]
     Dosage: UNK UNK, SINGLE
     Route: 061
     Dates: start: 20180414, end: 20180414
  93. CETAPHIL                           /02833701/ [Concomitant]
     Dosage: UNK UNK, BID
     Route: 061
     Dates: start: 20180418, end: 20180418
  94. CETAPHIL                           /02833701/ [Concomitant]
     Dosage: UNK, BID
     Route: 061
     Dates: start: 20180419, end: 20180419
  95. ATARAX [Concomitant]
     Active Substance: HYDROXYZINE HYDROCHLORIDE
     Dosage: 25 MG, Q6H
     Route: 048
     Dates: start: 20180409, end: 20180516
  96. TRANDATE [Concomitant]
     Active Substance: LABETALOL HYDROCHLORIDE
     Indication: BLOOD PRESSURE SYSTOLIC INCREASED
     Dosage: 5 MG, SINGLE
     Route: 042
     Dates: start: 20180423, end: 20180423
  97. KEPPRA [Concomitant]
     Active Substance: LEVETIRACETAM
     Indication: PRODUCT USED FOR UNKNOWN INDICATION
     Dosage: 500 MG, Q12H
     Route: 048
     Dates: start: 20180418, end: 20180419
  98. MAGNESIUM SULFATE. [Concomitant]
     Active Substance: MAGNESIUM SULFATE
     Dosage: 8-32 MEQ, SINGLE
     Route: 042
     Dates: start: 20180415, end: 20180415
  99. MERREM [Concomitant]
     Active Substance: MEROPENEM
     Dosage: 1 G, TID
     Route: 042
     Dates: start: 20180417, end: 20180423
  100. MYCOSTATIN [Concomitant]
     Active Substance: NYSTATIN
     Dosage: 5 ML, QID
     Route: 048
     Dates: start: 20180419, end: 20180419
  101. ZOFRAN [Concomitant]
     Active Substance: ONDANSETRON HYDROCHLORIDE
     Dosage: 8 MG, SINGLE
     Route: 048
     Dates: start: 20180422, end: 20180422
  102. POTASSIUM CHLORIDE. [Concomitant]
     Active Substance: POTASSIUM CHLORIDE
     Dosage: 20 MEQ, SINGLE
     Route: 042
     Dates: start: 20180421, end: 20180421
  103. POTASSIUM CHLORIDE. [Concomitant]
     Active Substance: POTASSIUM CHLORIDE
     Dosage: 10 MEQ, SINGLE
     Route: 042
     Dates: start: 20180423, end: 20180423
  104. K-DUR [Concomitant]
     Active Substance: POTASSIUM CHLORIDE
     Indication: PRODUCT USED FOR UNKNOWN INDICATION
     Dosage: 40 MEQ, SINGLE
     Route: 048
     Dates: start: 20180410, end: 20180410
  105. LASIX [Concomitant]
     Active Substance: FUROSEMIDE
     Dosage: 20 MG, BID
     Route: 042
     Dates: start: 20180420, end: 20180420
  106. LOPRESSOR [Concomitant]
     Active Substance: METOPROLOL TARTRATE
     Indication: PRODUCT USED FOR UNKNOWN INDICATION
     Dosage: 5 MG, SINGLE
     Route: 042
     Dates: start: 20180420, end: 20180420
  107. NORMAL SALINE [Concomitant]
     Active Substance: SODIUM CHLORIDE
     Dosage: 75 ML/HR
     Route: 042
     Dates: start: 20180417, end: 20180418
  108. NORMAL SALINE [Concomitant]
     Active Substance: SODIUM CHLORIDE
     Dosage: 500 ML, BID
     Route: 042
     Dates: start: 20180422, end: 20180422
  109. SODIUM CHLORIDE. [Concomitant]
     Active Substance: SODIUM CHLORIDE
     Indication: PRODUCT USED FOR UNKNOWN INDICATION
     Dosage: 3 ML, SINGLE
     Dates: start: 20180413, end: 20180413
  110. ATIVAN [Concomitant]
     Active Substance: LORAZEPAM
     Indication: ANXIETY
     Dosage: 0.5 MG, SINGLE
     Route: 048
     Dates: start: 20180413, end: 20180413
  111. ATIVAN [Concomitant]
     Active Substance: LORAZEPAM
     Dosage: 0.5 MG, SINGLE
     Route: 048
     Dates: start: 20180416, end: 20180416
  112. ATIVAN [Concomitant]
     Active Substance: LORAZEPAM
     Dosage: 0.25 MG, SINGLE
     Route: 048
     Dates: start: 20180419, end: 20180419
  113. SODIUM PHOSPHATE [Concomitant]
     Active Substance: SODIUM PHOSPHATE
     Dosage: 15 MMOL, PRN
     Route: 042
     Dates: start: 20180419, end: 20180515
  114. PROVENTIL [Concomitant]
     Active Substance: ALBUTEROL
     Indication: BRONCHOSPASM
     Dosage: 2.5 MG, Q4HR PRN
     Route: 045
     Dates: start: 20180515, end: 20180530
  115. SARNA (CAMPHOR (NATURAL)\MENTHOL) [Concomitant]
     Active Substance: CAMPHOR (NATURAL)\MENTHOL
     Indication: PRURITUS
     Dosage: UNK, BID
     Route: 061
     Dates: start: 20180505, end: 20180515
  116. PERIDEX [Concomitant]
     Active Substance: CHLORHEXIDINE GLUCONATE
     Indication: PRODUCT USED FOR UNKNOWN INDICATION
     Dosage: 15 ML, BID
     Route: 048
     Dates: start: 20180515, end: 20180530
  117. CETAPHIL                           /02629601/ [Concomitant]
     Indication: PRURITUS
     Dosage: UNK, QID
     Route: 061
     Dates: start: 20180409
  118. FLUMAZENIL. [Concomitant]
     Active Substance: FLUMAZENIL
     Indication: SEDATION COMPLICATION
     Dosage: 0.2 MG
     Route: 042
     Dates: start: 20180515, end: 20180518
  119. AYGESTIN [Concomitant]
     Active Substance: NORETHINDRONE ACETATE
     Indication: PRODUCT USED FOR UNKNOWN INDICATION
     Dosage: 15 MG, QD
     Route: 048
     Dates: start: 20180418, end: 20180418
  120. DUONEB [Concomitant]
     Active Substance: ALBUTEROL SULFATE\IPRATROPIUM BROMIDE
     Dosage: UNK
  121. TYLENOL [Concomitant]
     Active Substance: ACETAMINOPHEN
     Indication: PAIN
     Dosage: 650 MG, 3 TIMES
     Route: 048
     Dates: start: 20180411, end: 20180411
  122. TYLENOL [Concomitant]
     Active Substance: ACETAMINOPHEN
     Dosage: 650 MG, TID
     Route: 048
     Dates: start: 20180419, end: 20180419
  123. ZOVIRAX [Concomitant]
     Active Substance: ACYCLOVIR
     Dosage: 400 MG, TID
     Route: 048
     Dates: start: 20180419, end: 20180419
  124. MAALOX                             /00416501/ [Concomitant]
     Active Substance: ALUMINUM HYDROXIDE\DIMETHICONE\MAGNESIUM HYDROXIDE
     Indication: ABDOMINAL DISCOMFORT
     Dosage: 30 ML, SINGLE
     Route: 048
     Dates: start: 20180418, end: 20180418
  125. COLACE [Concomitant]
     Active Substance: DOCUSATE SODIUM
     Dosage: 200 MG, BID
     Route: 048
     Dates: start: 20180417, end: 20180515
  126. LEVAQUIN [Concomitant]
     Active Substance: LEVOFLOXACIN
     Dosage: 750 MG, QD EVERY 24 HOURS
     Route: 042
     Dates: start: 20180420, end: 20180423
  127. IMODIUM [Concomitant]
     Active Substance: LOPERAMIDE HYDROCHLORIDE
     Dosage: 2 MG, Q6H
     Route: 048
     Dates: start: 20180418, end: 20180517
  128. MAGNESIUM SULFATE. [Concomitant]
     Active Substance: MAGNESIUM SULFATE
     Indication: HYPOMAGNESAEMIA
     Dosage: 8-32 MEQ, SINGLE
     Route: 042
     Dates: start: 20180410, end: 20180410
  129. MYCOSTATIN [Concomitant]
     Active Substance: NYSTATIN
     Dosage: 5 ML, TID
     Route: 048
     Dates: start: 20180421, end: 20180421
  130. ZOFRAN [Concomitant]
     Active Substance: ONDANSETRON HYDROCHLORIDE
     Dosage: 8 MG, SINGLE
     Route: 048
     Dates: start: 20180418, end: 20180418
  131. ZOFRAN [Concomitant]
     Active Substance: ONDANSETRON HYDROCHLORIDE
     Dosage: 8 MG, BID
     Route: 042
     Dates: start: 20180423, end: 20180423
  132. ROXICODONE [Concomitant]
     Active Substance: OXYCODONE HYDROCHLORIDE
     Dosage: 5 MG, Q4H
     Route: 048
     Dates: start: 20180409, end: 20180508
  133. POTASSIUM CHLORIDE. [Concomitant]
     Active Substance: POTASSIUM CHLORIDE
     Dosage: 20 MEQ, BID
     Route: 042
     Dates: start: 20180412, end: 20180412
  134. POTASSIUM CHLORIDE. [Concomitant]
     Active Substance: POTASSIUM CHLORIDE
     Dosage: 10 MEQ, SINGLE
     Route: 042
     Dates: start: 20180414, end: 20180414
  135. OFIRMEV [Concomitant]
     Active Substance: ACETAMINOPHEN
     Dosage: 1 G, 400 ML/HR SINGLE
     Route: 042
     Dates: start: 20180420, end: 20180420
  136. LASIX [Concomitant]
     Active Substance: FUROSEMIDE
     Indication: PRODUCT USED FOR UNKNOWN INDICATION
     Dosage: 40 MG, SINGLE
     Route: 042
     Dates: start: 20180410, end: 20180410
  137. LASIX [Concomitant]
     Active Substance: FUROSEMIDE
     Dosage: 20 MG, SINGLE
     Route: 042
     Dates: start: 20180424, end: 20180424
  138. NORMAL SALINE [Concomitant]
     Active Substance: SODIUM CHLORIDE
     Dosage: 25 ML/HR CONTINUOUS
     Route: 042
     Dates: start: 20180423, end: 20180423
  139. POTASSIUM PHOSPHATE                /00493501/ [Concomitant]
     Active Substance: POTASSIUM PHOSPHATE, DIBASIC
     Indication: PRODUCT USED FOR UNKNOWN INDICATION
     Dosage: 20 MMOL, SINGLE
     Route: 042
     Dates: start: 20180417, end: 20180417
  140. HYDRALAZINE [Concomitant]
     Active Substance: HYDRALAZINE HYDROCHLORIDE
     Dosage: 5 MG, Q6H
     Route: 042
     Dates: start: 20180428, end: 20180516
  141. ATIVAN [Concomitant]
     Active Substance: LORAZEPAM
     Dosage: 0.5 MG, SINGLE
     Route: 042
     Dates: start: 20180414, end: 20180414
  142. SIMETHICONE (DIMETHICONE) [Concomitant]
     Active Substance: DIMETHICONE
     Indication: FLATULENCE
     Dosage: 80 MG, SINGLE
     Route: 048
     Dates: start: 20180419, end: 20180419
  143. XYLOCAINE [Concomitant]
     Active Substance: LIDOCAINE HYDROCHLORIDE
     Indication: PAIN
     Dosage: 2 ML
     Route: 042
     Dates: start: 20180515
  144. NEURONTIN [Concomitant]
     Active Substance: GABAPENTIN
     Indication: ANXIETY
     Dosage: 200 MG, Q8H
     Dates: start: 20180416, end: 20180508
  145. MAGNESIUM [Concomitant]
     Active Substance: MAGNESIUM
     Dosage: 133-399 MG, PRN
     Dates: start: 20180409, end: 20180418
  146. MAGNESIUM [Concomitant]
     Active Substance: MAGNESIUM
     Dosage: 133-532 MG, PRN
     Dates: start: 20180409, end: 20180418
  147. ONDASETRON                         /00955301/ [Concomitant]
     Active Substance: ONDANSETRON
     Indication: PRODUCT USED FOR UNKNOWN INDICATION
     Dosage: 16 MG, SINGLE
     Route: 042
     Dates: start: 20180409, end: 20180409
  148. TYLENOL [Concomitant]
     Active Substance: ACETAMINOPHEN
     Dosage: 650 MG, SINGLE
     Route: 048
     Dates: start: 20180415, end: 20180415
  149. TYLENOL [Concomitant]
     Active Substance: ACETAMINOPHEN
     Dosage: 650 MG, SINGLE
     Route: 048
     Dates: start: 20180420, end: 20180420
  150. ZOVIRAX [Concomitant]
     Active Substance: ACYCLOVIR
     Indication: EVIDENCE BASED TREATMENT
     Dosage: 400 MG, SINGLE
     Route: 048
     Dates: start: 20180409, end: 20180409
  151. COLACE [Concomitant]
     Active Substance: DOCUSATE SODIUM
     Dosage: 100 MG, BID
     Dates: start: 20180515, end: 20180516
  152. PEPCID [Concomitant]
     Active Substance: FAMOTIDINE
     Dosage: 20 MG, BID
     Route: 048
     Dates: start: 20180410, end: 20180419
  153. HEPARIN [Concomitant]
     Active Substance: HEPARIN SODIUM
     Indication: PRODUCT USED FOR UNKNOWN INDICATION
     Dosage: 100 IU/ML, SINGLE
     Route: 042
     Dates: start: 20180410, end: 20180410
  154. HEPARIN [Concomitant]
     Active Substance: HEPARIN SODIUM
     Dosage: 100 UNIT/ML, PRN
     Route: 042
     Dates: start: 20180418, end: 20180530
  155. ATARAX [Concomitant]
     Active Substance: HYDROXYZINE HYDROCHLORIDE
     Indication: PRURITUS
     Dosage: 25 MG, SINGLE
     Route: 048
     Dates: start: 20180422, end: 20180422
  156. MAGNESIUM SULFATE. [Concomitant]
     Active Substance: MAGNESIUM SULFATE
     Dosage: 8-32 MEQ, SINGLE
     Route: 042
     Dates: start: 20180412, end: 20180412
  157. MAGNESIUM SULFATE. [Concomitant]
     Active Substance: MAGNESIUM SULFATE
     Dosage: 8-32 MEQ, SINGLE
     Route: 042
     Dates: start: 20180421, end: 20180421
  158. MYCOSTATIN [Concomitant]
     Active Substance: NYSTATIN
     Dosage: 5 ML, TID
     Route: 048
     Dates: start: 20180418, end: 20180418
  159. MYCOSTATIN [Concomitant]
     Active Substance: NYSTATIN
     Dosage: 5 ML, SINGLE
     Route: 048
     Dates: start: 20180420, end: 20180420
  160. POTASSIUM CHLORIDE. [Concomitant]
     Active Substance: POTASSIUM CHLORIDE
     Dosage: 10 MEQ, SINGLE
     Route: 042
     Dates: start: 20180421, end: 20180421
  161. POTASSIUM CHLORIDE. [Concomitant]
     Active Substance: POTASSIUM CHLORIDE
     Dosage: 10 MEQ, SINGLE
     Route: 042
     Dates: start: 20180422, end: 20180422
  162. K-DUR [Concomitant]
     Active Substance: POTASSIUM CHLORIDE
     Dosage: 20 MEQ, SINGLE
     Route: 048
     Dates: start: 20180420, end: 20180420
  163. COMPAZINE                          /00013302/ [Concomitant]
     Active Substance: PROCHLORPERAZINE EDISYLATE
     Dosage: 5 MG, SINGLE
     Route: 042
     Dates: start: 20180419, end: 20180419
  164. DESYREL [Concomitant]
     Active Substance: TRAZODONE HYDROCHLORIDE
     Dosage: 50 MG, SINGLE BEDTIME
     Route: 048
     Dates: start: 20180416, end: 20180416
  165. MAXIPIME [Concomitant]
     Active Substance: CEFEPIME HYDROCHLORIDE
     Indication: PRODUCT USED FOR UNKNOWN INDICATION
     Dosage: 2 G, SINGLE
     Route: 042
     Dates: start: 20180411, end: 20180411
  166. MAXIPIME [Concomitant]
     Active Substance: CEFEPIME HYDROCHLORIDE
     Dosage: 2 G, SINGLE
     Route: 042
     Dates: start: 20180411, end: 20180411
  167. MAXIPIME [Concomitant]
     Active Substance: CEFEPIME HYDROCHLORIDE
     Dosage: 2 G,SINGLE
     Route: 042
     Dates: start: 20180412, end: 20180412
  168. LASIX [Concomitant]
     Active Substance: FUROSEMIDE
     Dosage: 20 MG, SINGLE
     Route: 048
     Dates: start: 20180417, end: 20180417
  169. NORMAL SALINE [Concomitant]
     Active Substance: SODIUM CHLORIDE
     Dosage: 75 ML/HR
     Route: 042
     Dates: start: 20180507, end: 20180517
  170. ZYLOPRIM [Concomitant]
     Active Substance: ALLOPURINOL
     Indication: PRODUCT USED FOR UNKNOWN INDICATION
     Dosage: 200 MG, QD
     Route: 048
     Dates: start: 20180412, end: 20180422
  171. SIMETHICONE (DIMETHICONE) [Concomitant]
     Active Substance: DIMETHICONE
     Indication: ABDOMINAL DISTENSION
     Dosage: 80 MG, TID
     Route: 048
     Dates: start: 20180409
  172. IPRATROPIUM BROMIDE/ALBUTEROL SULFATE [Concomitant]
     Active Substance: ALBUTEROL SULFATE\IPRATROPIUM BROMIDE
     Indication: PRODUCT USED FOR UNKNOWN INDICATION
     Dosage: 0.5 - 3 MG, UNK
     Dates: start: 20180515, end: 20180516
  173. ATEZOLIZUMAB. [Suspect]
     Active Substance: ATEZOLIZUMAB
     Indication: DIFFUSE LARGE B-CELL LYMPHOMA REFRACTORY
     Dosage: 1200 MG, SINGLE
     Route: 042
     Dates: start: 20180419, end: 20180419
  174. ZOVIRAX [Concomitant]
     Active Substance: ACYCLOVIR
     Dosage: 400 MG, SINGLE
     Route: 048
     Dates: start: 20180420, end: 20180420
  175. ZOVIRAX [Concomitant]
     Active Substance: ACYCLOVIR
     Dosage: 400 MG, TID
     Route: 048
     Dates: start: 20180508, end: 20180516
  176. BENADRYL [Concomitant]
     Active Substance: DIPHENHYDRAMINE HYDROCHLORIDE
     Indication: HYPERSENSITIVITY
     Dosage: 12.5 MG, SINGLE
     Route: 042
     Dates: start: 20180418, end: 20180418
  177. COLACE [Concomitant]
     Active Substance: DOCUSATE SODIUM
     Dosage: 200 MG, SINGLE
     Route: 048
     Dates: start: 20180411, end: 20180411
  178. PEPCID [Concomitant]
     Active Substance: FAMOTIDINE
     Dosage: 20 MG, SINGLE
     Route: 048
     Dates: start: 20180420, end: 20180420
  179. PEPCID [Concomitant]
     Active Substance: FAMOTIDINE
     Dosage: 20 MG, BID
     Route: 048
     Dates: start: 20180508, end: 20180516
  180. NEUPOGEN [Concomitant]
     Active Substance: FILGRASTIM
     Indication: PRODUCT USED FOR UNKNOWN INDICATION
     Dosage: 300 ?G, QD
     Route: 058
     Dates: start: 20180420, end: 20180423
  181. CETAPHIL                           /02833701/ [Concomitant]
     Dosage: UNK UNK, SINGLE
     Route: 061
     Dates: start: 20180413, end: 20180413
  182. ATARAX [Concomitant]
     Active Substance: HYDROXYZINE HYDROCHLORIDE
     Dosage: 25 MG, Q6H
     Dates: start: 20180409, end: 20180516
  183. ATROVENT [Concomitant]
     Active Substance: IPRATROPIUM BROMIDE
     Dosage: 0.5 MG, Q6H
     Dates: start: 20180420, end: 20180510
  184. KEPPRA [Concomitant]
     Active Substance: LEVETIRACETAM
     Dosage: 500 MG, Q12H
     Route: 042
     Dates: start: 20180421, end: 20180423
  185. KEPPRA [Concomitant]
     Active Substance: LEVETIRACETAM
     Dosage: 500 MG, BID
     Route: 048
     Dates: start: 20180512, end: 20180516
  186. IMODIUM [Concomitant]
     Active Substance: LOPERAMIDE HYDROCHLORIDE
     Indication: DIARRHOEA
     Dosage: 2 MG, SINGLE
     Route: 048
     Dates: start: 20180413, end: 20180413
  187. MAGNESIUM SULFATE. [Concomitant]
     Active Substance: MAGNESIUM SULFATE
     Dosage: 8-32 MEQ, SINGLE
     Route: 042
     Dates: start: 20180415, end: 20180415
  188. MYCOSTATIN [Concomitant]
     Active Substance: NYSTATIN
     Dosage: 5 ML, TID
     Route: 048
     Dates: start: 20180417, end: 20180417
  189. MYCOSTATIN [Concomitant]
     Active Substance: NYSTATIN
     Dosage: 5 ML, BID
     Route: 048
     Dates: start: 20180422, end: 20180422
  190. ZOFRAN [Concomitant]
     Active Substance: ONDANSETRON HYDROCHLORIDE
     Indication: NAUSEA
     Dosage: 8 MG, TID
     Route: 048
     Dates: start: 20180410, end: 20180412
  191. ZOFRAN [Concomitant]
     Active Substance: ONDANSETRON HYDROCHLORIDE
     Dosage: 8 MG, TID
     Route: 048
     Dates: start: 20180414, end: 20180415
  192. ZOFRAN [Concomitant]
     Active Substance: ONDANSETRON HYDROCHLORIDE
     Dosage: 16 MG, SINGLE
     Route: 042
     Dates: start: 20180421, end: 20180421
  193. POTASSIUM CHLORIDE. [Concomitant]
     Active Substance: POTASSIUM CHLORIDE
     Dosage: 10 - 60 MEQ, PRN
     Dates: start: 20180409, end: 20180530
  194. SENOKOT [Concomitant]
     Active Substance: SENNOSIDES
     Dosage: 2 TABLET, QD
     Route: 048
     Dates: start: 20180417
  195. DESYREL [Concomitant]
     Active Substance: TRAZODONE HYDROCHLORIDE
     Dosage: 50 MG, SINGLE BEDTIME
     Route: 048
     Dates: start: 20180411, end: 20180411
  196. OFIRMEV [Concomitant]
     Active Substance: ACETAMINOPHEN
     Dosage: 1 G, 400 ML/HR SINGLE
     Route: 042
     Dates: start: 20180422, end: 20180422
  197. NORMAL SALINE [Concomitant]
     Active Substance: SODIUM CHLORIDE
     Indication: PRODUCT USED FOR UNKNOWN INDICATION
     Dosage: 100 ML/HR CONTINUOUS
     Route: 042
     Dates: start: 20180409, end: 20180410
  198. SODIUM CHLORIDE. [Concomitant]
     Active Substance: SODIUM CHLORIDE
     Dosage: 250 ML, SINGLE
     Route: 042
     Dates: start: 20180423, end: 20180423
  199. CIPRO [Concomitant]
     Active Substance: CIPROFLOXACIN HYDROCHLORIDE
     Dosage: 500 MG, SINGLE
     Route: 048
     Dates: start: 20180420, end: 20180420
  200. CIPRO [Concomitant]
     Active Substance: CIPROFLOXACIN HYDROCHLORIDE
     Dosage: 500 MG, BID
     Route: 048
     Dates: start: 20180421, end: 20180422
  201. HYDRALAZINE [Concomitant]
     Active Substance: HYDRALAZINE HYDROCHLORIDE
     Dosage: 5 MG, SINGLE
     Route: 042
     Dates: start: 20180415, end: 20180415
  202. PROVENTIL [Concomitant]
     Active Substance: ALBUTEROL
     Indication: WHEEZING
     Dosage: 2.5 MG, Q4HR PRN
     Route: 045
     Dates: start: 20180420, end: 20180514
  203. XYLOCAINE [Concomitant]
     Active Substance: LIDOCAINE HYDROCHLORIDE
     Dosage: 2 ML, ONCE
     Route: 042
     Dates: start: 20180503, end: 20180503
  204. VERSED [Concomitant]
     Active Substance: MIDAZOLAM HYDROCHLORIDE
     Indication: SEDATION
     Dosage: 1 MG
     Route: 042
     Dates: start: 20180515, end: 20180515
  205. SOLU-CORTEF [Concomitant]
     Active Substance: HYDROCORTISONE SODIUM SUCCINATE
     Indication: HYPERSENSITIVITY
     Dosage: 50 MG, PRN
     Route: 042
     Dates: start: 20180409, end: 20180516
  206. AXICABTAGENE CILOLEUCEL [Suspect]
     Active Substance: AXICABTAGENE CILOLEUCEL
     Indication: DIFFUSE LARGE B-CELL LYMPHOMA REFRACTORY
     Dosage: 68 ML, SINGLE
     Route: 042
     Dates: start: 20180418, end: 20180418
  207. ATEZOLIZUMAB. [Suspect]
     Active Substance: ATEZOLIZUMAB
     Dosage: 1200 MG, SINGLE
     Route: 042
     Dates: start: 20180510, end: 20180510
  208. TYLENOL [Concomitant]
     Active Substance: ACETAMINOPHEN
     Dosage: 650 MG, SINGLE
     Route: 048
     Dates: start: 20180418, end: 20180418
  209. ZOVIRAX [Concomitant]
     Active Substance: ACYCLOVIR
     Indication: PROPHYLAXIS
     Dosage: 400 MG, SINGLE
     Route: 048
     Dates: start: 20180410, end: 20180410
  210. ZOVIRAX [Concomitant]
     Active Substance: ACYCLOVIR
     Dosage: 230 MG, 100 ML/HR 1 HOUR, TWICE
     Route: 042
     Dates: start: 20180421, end: 20180421
  211. ZOVIRAX [Concomitant]
     Active Substance: ACYCLOVIR
     Dosage: 230 MG, TID
     Route: 042
     Dates: start: 20180422, end: 20180422
  212. MAALOX                             /00416501/ [Concomitant]
     Active Substance: ALUMINUM HYDROXIDE\DIMETHICONE\MAGNESIUM HYDROXIDE
     Indication: DYSPEPSIA
     Dosage: 30 ML, Q6H
     Route: 048
     Dates: start: 20180409, end: 20180516
  213. BENADRYL [Concomitant]
     Active Substance: DIPHENHYDRAMINE HYDROCHLORIDE
     Dosage: 50 MG, Q4H
     Route: 048
     Dates: start: 20180409, end: 20180516
  214. BENADRYL [Concomitant]
     Active Substance: DIPHENHYDRAMINE HYDROCHLORIDE
     Dosage: 25 MG, Q4H
     Route: 042
     Dates: start: 20180409, end: 20180516
  215. CETAPHIL                           /02833701/ [Concomitant]
     Indication: PRURITUS
     Dosage: UNK, QD
     Route: 061
     Dates: start: 20180411, end: 20180515
  216. MAGNESIUM SULFATE. [Concomitant]
     Active Substance: MAGNESIUM SULFATE
     Dosage: 8-32 MEQ, SINGLE
     Route: 042
     Dates: start: 20180418, end: 20180418
  217. MAGNESIUM SULFATE. [Concomitant]
     Active Substance: MAGNESIUM SULFATE
     Dosage: 8-32 MEQ, BID
     Route: 042
     Dates: start: 20180419, end: 20180419
  218. MERREM [Concomitant]
     Active Substance: MEROPENEM
     Dosage: 1 G, BID
     Route: 042
     Dates: start: 20180413, end: 20180416
  219. MYCOSTATIN [Concomitant]
     Active Substance: NYSTATIN
     Dosage: 5 ML, TID
     Route: 048
     Dates: start: 20180423, end: 20180423
  220. ZOFRAN [Concomitant]
     Active Substance: ONDANSETRON HYDROCHLORIDE
     Indication: VOMITING
     Dosage: 8 MG, BID
     Route: 048
     Dates: start: 20180413, end: 20180413
  221. ZOFRAN [Concomitant]
     Active Substance: ONDANSETRON HYDROCHLORIDE
     Dosage: 8 MG, SINGLE
     Route: 042
     Dates: start: 20180416, end: 20180416
  222. ZOFRAN [Concomitant]
     Active Substance: ONDANSETRON HYDROCHLORIDE
     Dosage: 16 MG, BID
     Route: 042
     Dates: start: 20180418, end: 20180420
  223. POTASSIUM CHLORIDE. [Concomitant]
     Active Substance: POTASSIUM CHLORIDE
     Dosage: 30 MEQ, SINGLE
     Route: 048
     Dates: start: 20180411, end: 20180411
  224. POTASSIUM CHLORIDE. [Concomitant]
     Active Substance: POTASSIUM CHLORIDE
     Dosage: 10 MEQ, SINGLE
     Route: 042
     Dates: start: 20180416, end: 20180416
  225. POTASSIUM CHLORIDE. [Concomitant]
     Active Substance: POTASSIUM CHLORIDE
     Dosage: 10 MEQ, SINGLE
     Route: 048
     Dates: start: 20180419, end: 20180419
  226. COMPAZINE                          /00013302/ [Concomitant]
     Active Substance: PROCHLORPERAZINE EDISYLATE
     Dosage: 5 MG, SINGLE
     Route: 042
     Dates: start: 20180422, end: 20180422
  227. DESYREL [Concomitant]
     Active Substance: TRAZODONE HYDROCHLORIDE
     Indication: INSOMNIA
     Dosage: 50 MG, SINGLE BEDTIME
     Route: 048
     Dates: start: 20180410, end: 20180410
  228. LASIX [Concomitant]
     Active Substance: FUROSEMIDE
     Dosage: 20 MG, SINGLE
     Route: 042
     Dates: start: 20180418, end: 20180418
  229. ATIVAN [Concomitant]
     Active Substance: LORAZEPAM
     Dosage: 1 MG, SINGLE
     Route: 048
     Dates: start: 20180420, end: 20180420
  230. VITAMIN B6 [Concomitant]
     Active Substance: PYRIDOXINE HYDROCHLORIDE
     Indication: PRODUCT USED FOR UNKNOWN INDICATION
     Dosage: 100 MG, QD
     Route: 048
     Dates: start: 20180410, end: 20180424
  231. SODIUM PHOSPHATE [Concomitant]
     Active Substance: SODIUM PHOSPHATE
     Indication: PRODUCT USED FOR UNKNOWN INDICATION
     Dosage: 15 MMOL, SINGLE
     Route: 042
     Dates: start: 20180420, end: 20180420
  232. REGLAN [Concomitant]
     Active Substance: METOCLOPRAMIDE HYDROCHLORIDE
     Indication: VOMITING
     Dosage: 10 MG, SINGLE
     Route: 042
     Dates: start: 20180515, end: 20180515
  233. DRISDOL [Concomitant]
     Active Substance: ERGOCALCIFEROL
     Indication: PRODUCT USED FOR UNKNOWN INDICATION
     Dosage: 50000 UNITS EVERY 7 DAYS, UNK
     Dates: start: 20180430, end: 20180514

REACTIONS (4)
  - Pneumonia cytomegaloviral [Recovered/Resolved]
  - Multiple organ dysfunction syndrome [Fatal]
  - Renal tubular necrosis [Recovered/Resolved]
  - Encephalopathy [Recovered/Resolved]

NARRATIVE: CASE EVENT DATE: 20180409
